FAERS Safety Report 20632637 (Version 1)
Quarter: 2022Q1

REPORT INFORMATION
  Report Type: Spontaneous
  Country: US (occurrence: US)
  Receive Date: 20220324
  Receipt Date: 20220324
  Transmission Date: 20220423
  Serious: Yes (Other)
  Sender: FDA-Public Use
  Company Number: US-AMERICAN REGENT INC-2022000818

PATIENT
  Sex: Female
  Weight: 80.3 kg

DRUGS (22)
  1. VENOFER [Suspect]
     Active Substance: IRON SUCROSE
     Indication: Iron deficiency anaemia
     Dosage: 500 MG IN SODIUM CHLORIDE 0.9 % 250 ML
     Route: 042
     Dates: start: 20210120, end: 20210120
  2. VENOFER [Suspect]
     Active Substance: IRON SUCROSE
     Dosage: 200 MG IN SODIUM CHLORIDE 0.9 % 100 ML
     Route: 042
     Dates: start: 20210127, end: 20210127
  3. VENOFER [Suspect]
     Active Substance: IRON SUCROSE
     Dosage: 200 MG IN SODIUM CHLORIDE 0.9 % 100 ML
     Route: 042
     Dates: start: 20210203, end: 20210203
  4. VENOFER [Suspect]
     Active Substance: IRON SUCROSE
     Dosage: 200 MG IN SODIUM CHLORIDE 0.9 % 100 ML
     Route: 042
     Dates: start: 20210210, end: 20210210
  5. VENOFER [Suspect]
     Active Substance: IRON SUCROSE
     Dosage: 200 MG IN SODIUM CHLORIDE 0.9 % 100 ML
     Route: 042
     Dates: start: 20210217, end: 20210217
  6. VENOFER [Suspect]
     Active Substance: IRON SUCROSE
     Dosage: 200 MG IN SODIUM CHLORIDE 0.9 % 100 ML
     Route: 042
     Dates: start: 20210224, end: 20210224
  7. VENOFER [Suspect]
     Active Substance: IRON SUCROSE
     Dosage: 200 MG IN SODIUM CHLORIDE 0.9 % 100 ML
     Route: 042
     Dates: start: 20210322, end: 20210322
  8. VENOFER [Suspect]
     Active Substance: IRON SUCROSE
     Dosage: 200 MG IN SODIUM CHLORIDE 0.9 % 100 ML
     Route: 042
     Dates: start: 20210330, end: 20210330
  9. VENOFER [Suspect]
     Active Substance: IRON SUCROSE
     Dosage: 200 MG IN SODIUM CHLORIDE 0.9 % 100 ML
     Route: 042
     Dates: start: 20210401, end: 20210401
  10. VENOFER [Suspect]
     Active Substance: IRON SUCROSE
     Dosage: 200 MG IN SODIUM CHLORIDE 0.9 % 100 ML
     Route: 042
     Dates: start: 20210406, end: 20210406
  11. VENOFER [Suspect]
     Active Substance: IRON SUCROSE
     Dosage: 200 MG IN SODIUM CHLORIDE 0.9 % 100 ML
     Route: 042
     Dates: start: 20210408, end: 20210408
  12. VENOFER [Suspect]
     Active Substance: IRON SUCROSE
     Dosage: 200 MG IN SODIUM CHLORIDE 0.9 % 100 ML
     Route: 042
     Dates: start: 20210413, end: 20210413
  13. VENOFER [Suspect]
     Active Substance: IRON SUCROSE
     Dosage: 200 MG IN SODIUM CHLORIDE 0.9 % 100 ML
     Route: 042
     Dates: start: 20210415, end: 20210415
  14. VENOFER [Suspect]
     Active Substance: IRON SUCROSE
     Dosage: 200 MG IN SODIUM CHLORIDE 0.9 % 100 ML
     Route: 042
     Dates: start: 20210421, end: 20210421
  15. VENOFER [Suspect]
     Active Substance: IRON SUCROSE
     Dosage: 200 MG IN SODIUM CHLORIDE 0.9 % 100 ML
     Route: 042
     Dates: start: 20210422, end: 20210422
  16. VENOFER [Suspect]
     Active Substance: IRON SUCROSE
     Dosage: 200 MG IN SODIUM CHLORIDE 0.9 % 100 ML
     Route: 042
     Dates: start: 20210424, end: 20210424
  17. VENOFER [Suspect]
     Active Substance: IRON SUCROSE
     Dosage: 200 MG IN SODIUM CHLORIDE 0.9 % 100 ML
     Route: 042
     Dates: start: 20210426, end: 20210426
  18. ONDANSETRON [Concomitant]
     Active Substance: ONDANSETRON
     Indication: Nausea
     Dosage: DISSOLVE 1 TABLET (8 MG) ON TONGUE EVERY 8 HOURS AS NEEDED
     Route: 048
  19. TRANEXAMIC ACID [Concomitant]
     Active Substance: TRANEXAMIC ACID
     Indication: Product used for unknown indication
     Dosage: 1300 MILLIGRAM, TID
     Route: 048
  20. FERROUS SULFATE [Concomitant]
     Active Substance: FERROUS SULFATE
     Indication: Product used for unknown indication
     Dosage: 160 MILLIGRAM, QD WITH BREAKFAST
     Route: 048
  21. METOPROLOL SUCCINATE [Concomitant]
     Active Substance: METOPROLOL SUCCINATE
     Indication: Product used for unknown indication
     Dosage: 25 MILLIGRAM, QD
     Route: 048
  22. DIETARY SUPPLEMENT [Concomitant]
     Active Substance: DIETARY SUPPLEMENT
     Indication: Hypophosphataemia
     Dosage: 250 MILLIGRAM, TID WITH BREAKFAST, LUNCH, AND DINNER
     Route: 048

REACTIONS (6)
  - Panic attack [Recovered/Resolved]
  - Anxiety [Recovered/Resolved]
  - Hypersensitivity [Recovered/Resolved]
  - Incorrect product administration duration [Unknown]
  - Inappropriate schedule of product administration [Unknown]
  - Drug monitoring procedure incorrectly performed [Unknown]

NARRATIVE: CASE EVENT DATE: 20210101
